FAERS Safety Report 10541519 (Version 2)
Quarter: 2014Q4

REPORT INFORMATION
  Report Type: Report from Study
  Country: GR (occurrence: GR)
  Receive Date: 20141024
  Receipt Date: 20141112
  Transmission Date: 20150529
  Serious: Yes (Other)
  Sender: FDA-Public Use
  Company Number: PHHY2014GR133735

PATIENT
  Age: 63 Year
  Sex: Female
  Weight: 68 kg

DRUGS (1)
  1. AFINITOR [Suspect]
     Active Substance: EVEROLIMUS
     Indication: PANCREATIC NEUROENDOCRINE TUMOUR
     Dosage: 10 MG, UNK
     Route: 048
     Dates: start: 20130916, end: 20141010

REACTIONS (3)
  - Metastases to liver [Unknown]
  - Malignant neoplasm progression [Unknown]
  - Blood chromogranin A increased [Not Recovered/Not Resolved]

NARRATIVE: CASE EVENT DATE: 20140922
